FAERS Safety Report 4977913-5 (Version None)
Quarter: 2006Q2

REPORT INFORMATION
  Report Type: 
  Country: None (occurrence: None)
  Receive Date: 20060420
  Receipt Date: 20060202
  Transmission Date: 20061013
  Serious: Yes (Hospitalization)
  Sender: FDA-Public Use
  Company Number: US-MERCK-0602USA01608

PATIENT
  Age: 40 Year
  Sex: Female

DRUGS (2)
  1. VIOXX [Suspect]
     Route: 048
     Dates: start: 19990101, end: 20000101
  2. ASPIRIN [Concomitant]
     Route: 048

REACTIONS (2)
  - CHEST PAIN [None]
  - TRANSIENT ISCHAEMIC ATTACK [None]
